FAERS Safety Report 5464322-8 (Version None)
Quarter: 2007Q3

REPORT INFORMATION
  Report Type: 
  Country: None (occurrence: None)
  Receive Date: 20070921
  Receipt Date: 20070913
  Transmission Date: 20080115
  Serious: Yes (Death, Life-Threatening)
  Sender: FDA-Public Use
  Company Number: US-ELI_LILLY_AND_COMPANY-US200709002729

PATIENT
  Age: 37 Year
  Sex: Male

DRUGS (6)
  1. HUMATROPE [Suspect]
     Indication: PITUITARY TUMOUR REMOVAL
     Dosage: UNK, UNKNOWN
     Route: 065
     Dates: start: 20020101
  2. TRICOR [Concomitant]
     Dosage: UNK, UNKNOWN
     Route: 065
  3. LIPITOR [Concomitant]
     Dosage: UNK, UNKNOWN
     Route: 065
  4. LEVOXYL [Concomitant]
     Dosage: UNK, UNKNOWN
     Route: 065
  5. CORTEF [Concomitant]
     Dosage: UNK, UNKNOWN
     Route: 065
  6. ANDROGEL [Concomitant]
     Dosage: UNK, UNKNOWN
     Route: 065

REACTIONS (3)
  - BRAIN NEOPLASM [None]
  - COMA [None]
  - NECK PAIN [None]
